FAERS Safety Report 25682079 (Version 1)
Quarter: 2025Q3

REPORT INFORMATION
  Report Type: Spontaneous
  Country: US (occurrence: US)
  Receive Date: 20250814
  Receipt Date: 20250814
  Transmission Date: 20251021
  Serious: Yes (Hospitalization, Other)
  Sender: CHEPLAPHARM
  Company Number: US-ROCHE-10000350489

PATIENT
  Sex: Female

DRUGS (4)
  1. CAPECITABINE [Suspect]
     Active Substance: CAPECITABINE
     Indication: Neoplasm malignant
     Route: 048
  2. TUKYSA [Suspect]
     Active Substance: TUCATINIB
     Indication: Neoplasm malignant
     Dosage: 300 MG, 2 EVERY 1 DAY?DAILY DOSE: 600 MILLIGRAM
     Route: 048
     Dates: start: 20250103
  3. TUKYSA [Suspect]
     Active Substance: TUCATINIB
     Indication: Neoplasm malignant
     Dosage: 300 MG, 2 EVERY 1 DAY?DAILY DOSE: 600 MILLIGRAM
     Route: 048
     Dates: start: 20250104
  4. TUKYSA [Suspect]
     Active Substance: TUCATINIB
     Indication: Neoplasm malignant
     Dosage: 300 MG, 2 EVERY 1 DAY?DAILY DOSE: 600 MILLIGRAM
     Route: 048
     Dates: start: 20250710

REACTIONS (12)
  - Seizure [Unknown]
  - Metastases to central nervous system [Not Recovered/Not Resolved]
  - Pain in extremity [Unknown]
  - Hepatic function abnormal [Not Recovered/Not Resolved]
  - Dry skin [Not Recovered/Not Resolved]
  - Onycholysis [Not Recovered/Not Resolved]
  - Constipation [Unknown]
  - Fatigue [Unknown]
  - Palmar-plantar erythrodysaesthesia syndrome [Not Recovered/Not Resolved]
  - Gait disturbance [Not Recovered/Not Resolved]
  - Asthenia [Not Recovered/Not Resolved]
  - Ill-defined disorder [Not Recovered/Not Resolved]

NARRATIVE: CASE EVENT DATE: 20250707
